FAERS Safety Report 18404077 (Version 1)
Quarter: 2020Q4

REPORT INFORMATION
  Report Type: Spontaneous
  Country: US (occurrence: US)
  Receive Date: 20201015
  Receipt Date: 20201015
  Transmission Date: 20210114
  Serious: Yes (Life-Threatening)
  Sender: FDA-Public Use
  Company Number: None

PATIENT
  Age: 34 Year
  Weight: 56.7 kg

DRUGS (1)
  1. KAYA WELLNESS CO FULL SPECTRUM HEMP ELIXIR [Suspect]
     Active Substance: CANNABIDIOL\CANNABIS SATIVA SEED OIL
     Indication: ANXIETY
     Dates: start: 20200702, end: 20200705

REACTIONS (3)
  - Vomiting [None]
  - Suspected product contamination [None]
  - Manufacturing issue [None]

NARRATIVE: CASE EVENT DATE: 20200707
